FAERS Safety Report 4643486-X (Version None)
Quarter: 2005Q2

REPORT INFORMATION
  Report Type: 
  Country: None (occurrence: None)
  Receive Date: 20050328
  Receipt Date: 20040420
  Transmission Date: 20051028
  Serious: Yes (Life-Threatening, Other)
  Sender: FDA-Public Use
  Company Number: PHEH2004US04450

PATIENT
  Age: 60 Year
  Sex: Female
  Weight: 76.6 kg

DRUGS (4)
  1. VIVELLE DOT(ESTRADIOL, NORETHISTERONE ACETATE, ESTRADIOL) TRANS-THERAP [Suspect]
     Dosage: 0.025MG, TRANSDERMAL
     Route: 062
  2. ESTALIS COMBIPATCH(ESTRADIOL, NORETHISTERONE ACETATE) MATRIX TRANS THE [Suspect]
     Dosage: 0.05/0.14MG, TWICE WEEKLY, TRANSDERMAL
     Route: 062
     Dates: start: 20030401, end: 20040201
  3. ESTRACE [Suspect]
     Dosage: 1 MG
     Dates: start: 19930101, end: 20030401
  4. MEDROXYPROGESTERONE ACETATE(MEDROXYPROGESTERONE ACETATE) [Suspect]
     Dosage: 2.5 MG
     Dates: start: 19930101, end: 20030401

REACTIONS (4)
  - ENDOMETRIAL CANCER [None]
  - ENDOMETRIAL DISORDER [None]
  - HYSTERECTOMY [None]
  - VAGINAL HAEMORRHAGE [None]
